FAERS Safety Report 11197302 (Version 2)
Quarter: 2015Q3

REPORT INFORMATION
  Report Type: Report from Study
  Country: US (occurrence: US)
  Receive Date: 20150617
  Receipt Date: 20150721
  Transmission Date: 20151125
  Serious: Yes (Hospitalization)
  Sender: FDA-Public Use
  Company Number: US-BAYER-2015-353356

PATIENT
  Age: 59 Year
  Sex: Male

DRUGS (9)
  1. STIVARGA [Suspect]
     Active Substance: REGORAFENIB
     Indication: CHRONIC LYMPHOCYTIC LEUKAEMIA
     Dosage: 40 MG, 4 TABLETS DAILY
     Route: 048
     Dates: start: 20150526
  2. HYDROCODONE [Concomitant]
     Active Substance: HYDROCODONE
  3. STIVARGA [Suspect]
     Active Substance: REGORAFENIB
     Indication: COLON CANCER
  4. ACETAMINOPHEN. [Concomitant]
     Active Substance: ACETAMINOPHEN
  5. BOOST [Concomitant]
  6. POTASSIUM [Concomitant]
     Active Substance: POTASSIUM
  7. TYLENOL [Concomitant]
     Active Substance: ACETAMINOPHEN
  8. PROCHLORPERAZINE. [Concomitant]
     Active Substance: PROCHLORPERAZINE
  9. LOMOTIL [DIPHENOXYLATE HYDROCHLORIDE] [Concomitant]

REACTIONS (4)
  - Chest pain [Recovered/Resolved]
  - Hospice care [None]
  - Pain in extremity [Recovered/Resolved]
  - Aphonia [Recovered/Resolved]

NARRATIVE: CASE EVENT DATE: 20150611
